FAERS Safety Report 5590110-8 (Version None)
Quarter: 2008Q1

REPORT INFORMATION
  Report Type: 
  Country: None (occurrence: None)
  Receive Date: 20080114
  Receipt Date: 20070402
  Transmission Date: 20080703
  Serious: Yes (Other)
  Sender: FDA-Public Use
  Company Number: US-ABBOTT-07P-163-0360976-00

PATIENT
  Sex: Female
  Weight: 18.16 kg

DRUGS (2)
  1. OMNICEF [Suspect]
     Indication: ACUTE SINUSITIS
     Route: 048
     Dates: start: 20070216, end: 20070225
  2. OMNICEF [Suspect]
     Indication: OTITIS MEDIA

REACTIONS (2)
  - RASH PRURITIC [None]
  - STEVENS-JOHNSON SYNDROME [None]
